FAERS Safety Report 16084805 (Version 1)
Quarter: 2019Q1

REPORT INFORMATION
  Report Type: Spontaneous
  Country: US (occurrence: US)
  Receive Date: 20190318
  Receipt Date: 20190318
  Transmission Date: 20190418
  Serious: No
  Sender: FDA-Public Use
  Company Number: US-AVADEL SPECIALTY PHARMACEUTICALS, LLC-2019AVA00010

PATIENT
  Age: 58 Year
  Sex: Female
  Weight: 71.66 kg

DRUGS (2)
  1. NOCTIVA [Suspect]
     Active Substance: DESMOPRESSIN ACETATE
     Indication: NOCTURIA
     Dosage: 0.83 ?G, 1X/DAY AT NIGHT
     Route: 045
     Dates: start: 20181228, end: 20190107
  2. UNSPECIFIED SLEEP MEDICATION [Concomitant]
     Dosage: UNK, AS NEEDED

REACTIONS (7)
  - Urinary hesitation [Recovered/Resolved]
  - Gastroenteritis viral [Recovered/Resolved]
  - Nasal discomfort [Recovered/Resolved]
  - Rhinorrhoea [Recovered/Resolved]
  - Nausea [Recovering/Resolving]
  - Nasal congestion [Recovered/Resolved]
  - Insomnia [Recovered/Resolved]

NARRATIVE: CASE EVENT DATE: 20180107
